FAERS Safety Report 6276326-6 (Version None)
Quarter: 2009Q3

REPORT INFORMATION
  Report Type: 
  Country: None (occurrence: None)
  Receive Date: 20090722
  Receipt Date: 20090709
  Transmission Date: 20100115
  Serious: Yes (Hospitalization)
  Sender: FDA-Public Use
  Company Number: HK-ROCHE-643635

PATIENT
  Age: 55 Year
  Sex: Female

DRUGS (2)
  1. PEGASYS [Suspect]
     Dosage: DOSING FREQ: WEEKLY
     Route: 058
  2. RIBAVIRIN [Suspect]
     Dosage: DOSING FREQ: DAILY
     Route: 048

REACTIONS (1)
  - VARICES OESOPHAGEAL [None]
